FAERS Safety Report 7321442-0 (Version None)
Quarter: 2011Q1

REPORT INFORMATION
  Report Type: 
  Country: None (occurrence: None)
  Receive Date: 20110228
  Receipt Date: 20100520
  Transmission Date: 20110831
  Serious: Yes (Other)
  Sender: FDA-Public Use
  Company Number: US-PFIZER INC-2010064416

PATIENT
  Sex: Female

DRUGS (2)
  1. LITHIUM [Concomitant]
     Dosage: UNK
  2. GEODON [Suspect]
     Indication: BIPOLAR DISORDER
     Dosage: 20 MG, DAILY
     Route: 048
     Dates: start: 20100520

REACTIONS (3)
  - MOVEMENT DISORDER [None]
  - ANXIETY [None]
  - INSOMNIA [None]
